FAERS Safety Report 21931166 (Version 2)
Quarter: 2023Q1

REPORT INFORMATION
  Report Type: Spontaneous
  Country: BR (occurrence: BR)
  Receive Date: 20230131
  Receipt Date: 20230209
  Transmission Date: 20230418
  Serious: Yes (Other)
  Sender: FDA-Public Use
  Company Number: BR-JNJFOC-20230146083

PATIENT
  Age: 20 Year
  Sex: Female
  Weight: 65 kg

DRUGS (7)
  1. SPRAVATO [Suspect]
     Active Substance: ESKETAMINE
     Indication: Depression
     Dosage: 4 WEEKS
     Dates: start: 20221101
  2. SPRAVATO [Suspect]
     Active Substance: ESKETAMINE
     Dates: start: 20221209, end: 20221219
  3. VALPROIC ACID [Concomitant]
     Active Substance: VALPROIC ACID
  4. BRINTELLIX [VORTIOXETINE HYDROBROMIDE] [Concomitant]
     Indication: Depression
     Route: 048
  5. ARIPIPRAZOLE [Concomitant]
     Active Substance: ARIPIPRAZOLE
     Indication: Borderline personality disorder
     Route: 048
     Dates: start: 202212
  6. DEPAKOTE ER [Concomitant]
     Active Substance: DIVALPROEX SODIUM
     Indication: Epilepsy
     Route: 048
  7. CANNABIDIOL [Concomitant]
     Active Substance: CANNABIDIOL
     Indication: Anxiety
     Route: 060

REACTIONS (8)
  - Substance abuse [Recovering/Resolving]
  - Suicidal ideation [Recovering/Resolving]
  - Mania [Recovered/Resolved]
  - Intentional product use issue [Unknown]
  - Depression [Recovering/Resolving]
  - Somnolence [Recovering/Resolving]
  - Euphoric mood [Recovered/Resolved]
  - Disinhibition [Recovering/Resolving]

NARRATIVE: CASE EVENT DATE: 20220101
